FAERS Safety Report 25551117 (Version 1)
Quarter: 2025Q3

REPORT INFORMATION
  Report Type: Spontaneous
  Country: CA (occurrence: CA)
  Receive Date: 20250714
  Receipt Date: 20250714
  Transmission Date: 20251021
  Serious: Yes (Life-Threatening, Hospitalization, Other)
  Sender: MYLAN
  Company Number: CA-MYLANLABS-2025M1057895

PATIENT
  Age: 12 Year
  Sex: Female
  Weight: 96 kg

DRUGS (12)
  1. PHENYTOIN [Suspect]
     Active Substance: PHENYTOIN
     Indication: Product used for unknown indication
  2. ACETAMINOPHEN [Concomitant]
     Active Substance: ACETAMINOPHEN
  3. CARBAMAZEPINE [Concomitant]
     Active Substance: CARBAMAZEPINE
  4. CEFAZOLIN [Concomitant]
     Active Substance: CEFAZOLIN
  5. CEPHALEXIN [Concomitant]
     Active Substance: CEPHALEXIN
  6. CLOBAZAM [Concomitant]
     Active Substance: CLOBAZAM
  7. LACOSAMIDE [Concomitant]
     Active Substance: LACOSAMIDE
  8. LEVETIRACETAM [Concomitant]
     Active Substance: LEVETIRACETAM
  9. LORAZEPAM [Concomitant]
     Active Substance: LORAZEPAM
  10. MIDAZOLAM [Concomitant]
     Active Substance: MIDAZOLAM
  11. PYRIDOXINE [Concomitant]
     Active Substance: PYRIDOXINE
  12. SERTRALINE [Concomitant]
     Active Substance: SERTRALINE HYDROCHLORIDE

REACTIONS (2)
  - Deep vein thrombosis [Recovered/Resolved]
  - Lymphangitis [Recovered/Resolved]
